FAERS Safety Report 5876720-9 (Version None)
Quarter: 2008Q3

REPORT INFORMATION
  Report Type: 
  Country: None (occurrence: None)
  Receive Date: 20080909
  Receipt Date: 20080909
  Transmission Date: 20090109
  Serious: Yes (Life-Threatening, Hospitalization, Other)
  Sender: FDA-Public Use
  Company Number: None

PATIENT
  Age: 38 Year
  Sex: Female
  Weight: 80.7403 kg

DRUGS (1)
  1. FENTANYL [Suspect]
     Indication: MIGRAINE
     Dosage: ONE PATCH EVERY 72 HOURS TOP
     Route: 061
     Dates: start: 20010801, end: 20030623

REACTIONS (3)
  - AMNESIA [None]
  - COMA [None]
  - OVERDOSE [None]
